FAERS Safety Report 7413003-X (Version None)
Quarter: 2011Q2

REPORT INFORMATION
  Report Type: 
  Country: None (occurrence: None)
  Receive Date: 20110413
  Receipt Date: 20110404
  Transmission Date: 20111010
  Serious: Yes (Hospitalization)
  Sender: FDA-Public Use
  Company Number: PHHY2011IT28112

PATIENT
  Sex: Male

DRUGS (7)
  1. ASPIRIN [Concomitant]
     Indication: THROMBOSIS PROPHYLAXIS
  2. VENITRIN [Concomitant]
     Indication: CARDIOVASCULAR EVENT PROPHYLAXIS
     Dosage: 10 MG, QD
     Route: 062
  3. SINVACOR [Concomitant]
     Indication: HYPERCHOLESTEROLAEMIA
     Dosage: 40 MG, UNK
  4. VENTOLIN [Concomitant]
     Indication: ASTHMA
  5. TRIATEC [Concomitant]
     Indication: HYPERTENSION
     Dosage: 2.5 MG, UNK
  6. AMOXICILLIN [Suspect]
     Indication: OROPHARYNGEAL PAIN
     Dosage: 1 G, ONCE/SINGLE
     Route: 048
     Dates: start: 20110110, end: 20110110
  7. DILATREND [Concomitant]
     Indication: HYPERTENSION
     Dosage: 6.25 MG, UNK

REACTIONS (5)
  - ANGIOEDEMA [None]
  - THROAT TIGHTNESS [None]
  - ERYTHEMA [None]
  - DYSPNOEA [None]
  - FACE OEDEMA [None]
